FAERS Safety Report 4673526-3 (Version None)
Quarter: 2005Q2

REPORT INFORMATION
  Report Type: 
  Country: None (occurrence: None)
  Receive Date: 20050523
  Receipt Date: 20050509
  Transmission Date: 20051028
  Serious: Yes (Hospitalization, Other)
  Sender: FDA-Public Use
  Company Number: HQWYE348524MAR05

PATIENT
  Age: 59 Year
  Sex: Female
  Weight: 64.92 kg

DRUGS (13)
  1. RAPAMUNE [Suspect]
     Indication: PROPHYLAXIS AGAINST TRANSPLANT REJECTION
     Dosage: DOSE VARIES (CONCENTRATION CONTROLLED) 3 MG DAILY AT TIME OF EVENT, ORAL
     Route: 048
     Dates: start: 20050127, end: 20050323
  2. EVISTA [Concomitant]
  3. ATARAX [Concomitant]
  4. UNSPECIFIED ANTIHYPERTENSIVE AGENT (UNSPECIFIED ANTIHYPERTENSIVE AGENT [Concomitant]
  5. PRILOSEC [Concomitant]
  6. ACTIGALL [Concomitant]
  7. CALCIUM (CALCIUM) [Concomitant]
  8. MULTIVITAMINS, PLAIN (MULTIVITAMINS, PLAIN) [Concomitant]
  9. -ORA-JEL (BENZOCAINE) [Concomitant]
  10. ALEVE [Concomitant]
  11. TYLENOL [Concomitant]
  12. UNSPECIFIED ANTIHYPERTENSIVE AGENT (UNSPECIFIED ANTIHYPERTENSIVE AGENT [Concomitant]
  13. PRILOSEC [Concomitant]

REACTIONS (14)
  - ANAEMIA [None]
  - BACTERIAL INFECTION [None]
  - BLOOD CREATINE PHOSPHOKINASE INCREASED [None]
  - BLOOD CREATINE PHOSPHOKINASE MB INCREASED [None]
  - BRONCHIECTASIS [None]
  - DRUG TOXICITY [None]
  - LABORATORY TEST INTERFERENCE [None]
  - PERICARDIAL EFFUSION [None]
  - PLEURAL EFFUSION [None]
  - PULMONARY OEDEMA [None]
  - PYREXIA [None]
  - SPUTUM CULTURE POSITIVE [None]
  - STAPHYLOCOCCAL INFECTION [None]
  - STREPTOCOCCAL INFECTION [None]
